FAERS Safety Report 19736995 (Version 2)
Quarter: 2021Q3

REPORT INFORMATION
  Report Type: Spontaneous
  Country: US (occurrence: US)
  Receive Date: 20210823
  Receipt Date: 20210919
  Transmission Date: 20211014
  Serious: No
  Sender: FDA-Public Use
  Company Number: US-SA-2021SA275649

PATIENT
  Age: 50 Year
  Sex: Male

DRUGS (2)
  1. DUPIXENT [Suspect]
     Active Substance: DUPILUMAB
     Dosage: 300 MG, QOW
     Route: 058
     Dates: start: 202108
  2. DUPIXENT [Suspect]
     Active Substance: DUPILUMAB
     Indication: URTICARIA
     Dosage: 600 MG, 1X
     Route: 058
     Dates: start: 20210805, end: 20210805

REACTIONS (6)
  - Product use in unapproved indication [Unknown]
  - Pain in jaw [Unknown]
  - Periorbital pain [Unknown]
  - Ear pain [Unknown]
  - Headache [Unknown]
  - Gingival swelling [Unknown]

NARRATIVE: CASE EVENT DATE: 20210805
